FAERS Safety Report 19983955 (Version 1)
Quarter: 2021Q4

REPORT INFORMATION
  Report Type: Spontaneous
  Country: US (occurrence: US)
  Receive Date: 20211021
  Receipt Date: 20211021
  Transmission Date: 20220303
  Serious: No
  Sender: FDA-Public Use
  Company Number: US-GE HEALTHCARE LIFE SCIENCES-2021CSU004409

PATIENT
  Age: 35 Year
  Sex: Female
  Weight: 74.38 kg

DRUGS (4)
  1. OMNIPAQUE [Suspect]
     Active Substance: IOHEXOL
     Indication: Angiogram
     Dosage: 100 ML, SINGLE
     Route: 042
     Dates: start: 20210831, end: 20210831
  2. OMNIPAQUE [Suspect]
     Active Substance: IOHEXOL
     Indication: Pulmonary embolism
  3. OMNIPAQUE [Suspect]
     Active Substance: IOHEXOL
     Indication: Dyspnoea
  4. OMNIPAQUE [Suspect]
     Active Substance: IOHEXOL
     Indication: Fibrin D dimer increased

REACTIONS (3)
  - Throat irritation [Recovered/Resolved]
  - Sneezing [Recovered/Resolved]
  - Oral pruritus [Recovered/Resolved]

NARRATIVE: CASE EVENT DATE: 20210831
